FAERS Safety Report 12448290 (Version 1)
Quarter: 2016Q2

REPORT INFORMATION
  Report Type: Spontaneous
  Country: US (occurrence: US)
  Receive Date: 20160608
  Receipt Date: 20160608
  Transmission Date: 20160815
  Serious: Yes (Hospitalization, Other)
  Sender: FDA-Public Use
  Company Number: US-PFIZER INC-2016238333

PATIENT
  Age: 72 Year
  Sex: Male

DRUGS (2)
  1. RIFAMPICIN [Suspect]
     Active Substance: RIFAMPIN
     Dosage: UNK
  2. VANCOMYCIN HCL [Suspect]
     Active Substance: VANCOMYCIN HYDROCHLORIDE
     Dosage: UNK

REACTIONS (2)
  - Device related infection [Unknown]
  - Candida infection [Unknown]

NARRATIVE: CASE EVENT DATE: 20140822
